FAERS Safety Report 5748520-1 (Version None)
Quarter: 2008Q2

REPORT INFORMATION
  Report Type: 
  Country: None (occurrence: None)
  Receive Date: 20080523
  Receipt Date: 20080515
  Transmission Date: 20081010
  Serious: Yes (Disabling)
  Sender: FDA-Public Use
  Company Number: CH-PFIZER INC-2008041917

PATIENT
  Sex: Female

DRUGS (3)
  1. ZOLOFT [Suspect]
     Indication: BIPOLAR DISORDER
     Route: 048
  2. ENTUMIN [Interacting]
     Indication: BIPOLAR DISORDER
     Route: 048
  3. LAMICTAL [Concomitant]
     Indication: BIPOLAR DISORDER
     Dosage: DAILY DOSE:250MG
     Route: 048

REACTIONS (3)
  - DRUG INTERACTION [None]
  - INSOMNIA [None]
  - TREMOR [None]
